FAERS Safety Report 9947833 (Version 1)
Quarter: 2014Q1

REPORT INFORMATION
  Report Type: Spontaneous
  Country: US (occurrence: US)
  Receive Date: 20140303
  Receipt Date: 20140303
  Transmission Date: 20141002
  Serious: No
  Sender: FDA-Public Use
  Company Number: US-ABBVIE-13P-163-1062275-00

PATIENT
  Age: 64 Year
  Sex: Male

DRUGS (7)
  1. HUMIRA [Suspect]
     Indication: CROHN^S DISEASE
     Route: 058
     Dates: start: 20130304
  2. DILTIAZEM [Concomitant]
     Indication: HYPERTENSION
  3. ASPIRIN [Concomitant]
     Indication: PRODUCT USED FOR UNKNOWN INDICATION
  4. ATENOLOL [Concomitant]
     Indication: HYPERTENSION
  5. PREDNISONE [Concomitant]
     Indication: CROHN^S DISEASE
  6. PEPCID OTC [Concomitant]
     Indication: PRODUCT USED FOR UNKNOWN INDICATION
  7. ASACOL [Concomitant]
     Indication: CROHN^S DISEASE

REACTIONS (5)
  - Balance disorder [Not Recovered/Not Resolved]
  - Burning sensation [Not Recovered/Not Resolved]
  - Burning sensation [Not Recovered/Not Resolved]
  - Fatigue [Not Recovered/Not Resolved]
  - Heart rate decreased [Not Recovered/Not Resolved]
